FAERS Safety Report 9419867 (Version 1)
Quarter: 2013Q3

REPORT INFORMATION
  Report Type: Report from Study
  Country: US (occurrence: US)
  Receive Date: 20130725
  Receipt Date: 20130725
  Transmission Date: 20140515
  Serious: Yes (Hospitalization)
  Sender: FDA-Public Use
  Company Number: US-ASTRAZENECA-2013SE54393

PATIENT
  Age: 87 Year
  Sex: Female
  Weight: 52.2 kg

DRUGS (7)
  1. BRILINTA [Suspect]
     Indication: STENT PLACEMENT
     Route: 048
     Dates: start: 20130121, end: 20130702
  2. LISINOPRIL [Suspect]
     Indication: CARDIAC DISORDER
     Route: 048
  3. ASPIRIN [Suspect]
     Route: 065
     Dates: start: 20130121
  4. CLOPIDOGREL [Concomitant]
     Dates: start: 20130708
  5. TYLENOL [Concomitant]
     Indication: HEADACHE
  6. SIMVASTATIN [Concomitant]
     Indication: BLOOD CHOLESTEROL ABNORMAL
     Dates: start: 201303
  7. METOPROLOL TAR [Concomitant]

REACTIONS (3)
  - Haematochezia [Recovered/Resolved]
  - Abdominal pain upper [Unknown]
  - Diarrhoea [Recovered/Resolved]
